FAERS Safety Report 26133288 (Version 1)
Quarter: 2025Q4

REPORT INFORMATION
  Report Type: Spontaneous
  Country: GB (occurrence: GB)
  Receive Date: 20251209
  Receipt Date: 20251209
  Transmission Date: 20260117
  Serious: Yes (Other)
  Sender: Onesource Specialty Pharma
  Company Number: GB-STRIDES ARCOLAB LIMITED-2025OS001432

PATIENT

DRUGS (6)
  1. ETOPOSIDE [Suspect]
     Active Substance: ETOPOSIDE
     Indication: Nongerminomatous germ cell tumour of the CNS
     Dosage: UNK
     Route: 065
  2. ETOPOSIDE [Suspect]
     Active Substance: ETOPOSIDE
     Indication: Intracranial germ cell tumour
  3. CISPLATIN [Suspect]
     Active Substance: CISPLATIN
     Indication: Intracranial germ cell tumour
     Dosage: UNK
     Route: 065
  4. CISPLATIN [Suspect]
     Active Substance: CISPLATIN
     Indication: Nongerminomatous germ cell tumour of the CNS
  5. IFOSFAMIDE [Suspect]
     Active Substance: IFOSFAMIDE
     Indication: Nongerminomatous germ cell tumour of the CNS
     Dosage: UNK
     Route: 065
  6. IFOSFAMIDE [Suspect]
     Active Substance: IFOSFAMIDE
     Indication: Intracranial germ cell tumour

REACTIONS (3)
  - Neoplasm progression [Unknown]
  - Neoplasm recurrence [Unknown]
  - Off label use [Unknown]
